FAERS Safety Report 6597828-9 (Version None)
Quarter: 2010Q1

REPORT INFORMATION
  Report Type: 
  Country: None (occurrence: None)
  Receive Date: 20100216
  Receipt Date: 20100204
  Transmission Date: 20100710
  Serious: Yes (Death, Hospitalization)
  Sender: FDA-Public Use
  Company Number: 2010AL000752

PATIENT
  Age: 73 Year
  Sex: Male

DRUGS (3)
  1. METFORMIN HYDROCHLORIDE [Suspect]
     Dosage: 5000 MG, X1;
     Dates: start: 20071001, end: 20071001
  2. GLICLAZIDE [Concomitant]
  3. PERINDOPRIL [Concomitant]

REACTIONS (15)
  - ABDOMINAL DISCOMFORT [None]
  - ACUTE PULMONARY OEDEMA [None]
  - BLOOD GLUCOSE INCREASED [None]
  - DEHYDRATION [None]
  - DIARRHOEA [None]
  - DISSEMINATED INTRAVASCULAR COAGULATION [None]
  - HAEMODIALYSIS [None]
  - HAEMOGLOBIN DECREASED [None]
  - HYPOTENSION [None]
  - LACTIC ACIDOSIS [None]
  - METABOLIC ACIDOSIS [None]
  - OVERDOSE [None]
  - RENAL IMPAIRMENT [None]
  - SINUS TACHYCARDIA [None]
  - VOMITING [None]
